FAERS Safety Report 9079820 (Version 1)
Quarter: 2013Q1

REPORT INFORMATION
  Report Type: Spontaneous
  Country: FR (occurrence: FR)
  Receive Date: 20130215
  Receipt Date: 20130215
  Transmission Date: 20140127
  Serious: Yes (Other)
  Sender: FDA-Public Use
  Company Number: FR-GLAXOSMITHKLINE-B0867114A

PATIENT
  Sex: Female

DRUGS (6)
  1. REQUIP [Suspect]
     Indication: PARKINSON^S DISEASE
     Route: 048
     Dates: start: 200812, end: 201301
  2. MODOPAR [Suspect]
     Indication: PARKINSON^S DISEASE
     Route: 048
     Dates: start: 200806
  3. EFFEXOR [Concomitant]
     Route: 065
  4. COMTAN [Concomitant]
     Dosage: 800MG PER DAY
     Route: 065
     Dates: start: 200909
  5. AZILECT [Concomitant]
     Dosage: 1MG PER DAY
     Route: 065
     Dates: start: 201112
  6. STILNOX [Concomitant]
     Dosage: 10MG PER DAY
     Route: 065
     Dates: start: 201212

REACTIONS (4)
  - Impulse-control disorder [Not Recovered/Not Resolved]
  - Eating disorder [Not Recovered/Not Resolved]
  - Dependence [Not Recovered/Not Resolved]
  - Psychomotor hyperactivity [Not Recovered/Not Resolved]
